FAERS Safety Report 5119987-7 (Version None)
Quarter: 2006Q3

REPORT INFORMATION
  Report Type: 
  Country: None (occurrence: None)
  Receive Date: 20060929
  Receipt Date: 20060916
  Transmission Date: 20061208
  Serious: Yes (Other)
  Sender: FDA-Public Use
  Company Number: 2006112101

PATIENT
  Age: 51 Year
  Sex: Male

DRUGS (1)
  1. VIAGRA [Suspect]
     Indication: ERECTILE DYSFUNCTION
     Dosage: ORAL
     Route: 048

REACTIONS (7)
  - CAROTID ARTERY DISSECTION [None]
  - CAROTID ARTERY OCCLUSION [None]
  - DRUG EFFECT DECREASED [None]
  - HEMIPARESIS [None]
  - HORNER'S SYNDROME [None]
  - TRANSIENT ISCHAEMIC ATTACK [None]
  - VISUAL DISTURBANCE [None]
